FAERS Safety Report 6623690-1 (Version None)
Quarter: 2010Q1

REPORT INFORMATION
  Report Type: 
  Country: None (occurrence: None)
  Receive Date: 20100310
  Receipt Date: 20091111
  Transmission Date: 20100710
  Serious: No
  Sender: FDA-Public Use
  Company Number: US-BIOGENIDEC-2009BI036884

PATIENT
  Age: 44 Year
  Sex: Female

DRUGS (3)
  1. AVONEX [Suspect]
     Indication: MULTIPLE SCLEROSIS
     Route: 030
  2. PREDNISONE [Concomitant]
  3. FLU VACCINE [Concomitant]

REACTIONS (5)
  - INJECTION SITE MASS [None]
  - INJECTION SITE SWELLING [None]
  - SKIN LACERATION [None]
  - VACCINATION COMPLICATION [None]
  - VACCINATION SITE PAIN [None]
